FAERS Safety Report 4775411-5 (Version None)
Quarter: 2005Q3

REPORT INFORMATION
  Report Type: 
  Country: None (occurrence: None)
  Receive Date: 20050921
  Receipt Date: 20050921
  Transmission Date: 20060218
  Serious: Yes (Life-Threatening, Hospitalization)
  Sender: FDA-Public Use
  Company Number: None

PATIENT
  Sex: Female
  Weight: 50.8029 kg

DRUGS (2)
  1. ORTHO EVRA [Suspect]
     Indication: CONTRACEPTION
     Dosage: ONCE A WEEK
     Dates: start: 20030117, end: 20050901
  2. ORTHO EVRA [Suspect]
     Indication: MUSCLE SPASMS
     Dosage: ONCE A WEEK
     Dates: start: 20030117, end: 20050901

REACTIONS (2)
  - PULMONARY EMBOLISM [None]
  - PULMONARY OEDEMA [None]
